FAERS Safety Report 19918857 (Version 3)
Quarter: 2022Q1

REPORT INFORMATION
  Report Type: Report from Study
  Country: US (occurrence: US)
  Receive Date: 20211004
  Receipt Date: 20220122
  Transmission Date: 20220423
  Serious: No
  Sender: FDA-Public Use
  Company Number: US-NOVARTISTESTPH-NVSC2021US222943

PATIENT
  Sex: Female

DRUGS (2)
  1. COSENTYX [Suspect]
     Active Substance: SECUKINUMAB
     Indication: Psoriasis
     Dosage: 300 MG, QW
     Route: 003
  2. COSENTYX [Suspect]
     Active Substance: SECUKINUMAB
     Route: 003

REACTIONS (3)
  - Psoriasis [Unknown]
  - Incorrect route of product administration [Unknown]
  - Product dose omission issue [Unknown]
